FAERS Safety Report 13830749 (Version 1)
Quarter: 2017Q3

REPORT INFORMATION
  Report Type: Spontaneous
  Country: SE (occurrence: SE)
  Receive Date: 20170803
  Receipt Date: 20170803
  Transmission Date: 20171127
  Serious: Yes (Hospitalization)
  Sender: FDA-Public Use
  Company Number: SE-TEVA-790533ACC

PATIENT
  Age: 36 Year
  Sex: Female

DRUGS (6)
  1. SOBRIL [Suspect]
     Active Substance: OXAZEPAM
     Dosage: SMALLER AMOUNT
     Dates: start: 20170705, end: 20170705
  2. GABAPENTIN. [Suspect]
     Active Substance: GABAPENTIN
     Dates: start: 20170705, end: 20170705
  3. SEROQUEL [Suspect]
     Active Substance: QUETIAPINE FUMARATE
     Dates: start: 20170705, end: 20170705
  4. SIFROL [Suspect]
     Active Substance: PRAMIPEXOLE
     Dates: start: 20170705, end: 20170705
  5. STESOLID [Suspect]
     Active Substance: DIAZEPAM
     Dosage: ^MINDRE M?NGD^
     Dates: start: 20170705, end: 20170705
  6. HALDOL [Suspect]
     Active Substance: HALOPERIDOL
     Dosage: ^POTENTIELLT 75 MG^
     Dates: start: 20170705, end: 20170705

REACTIONS (3)
  - Depressed level of consciousness [Recovered/Resolved]
  - Toxicity to various agents [Recovered/Resolved]
  - Intentional self-injury [Recovered/Resolved]

NARRATIVE: CASE EVENT DATE: 20170705
